FAERS Safety Report 8318359-1 (Version None)
Quarter: 2012Q2

REPORT INFORMATION
  Report Type: 
  Country: None (occurrence: None)
  Receive Date: 20120427
  Receipt Date: 20120412
  Transmission Date: 20120825
  Serious: Yes (Hospitalization, Other)
  Sender: FDA-Public Use
  Company Number: US-ROCHE-GNE290948

PATIENT
  Age: 18 Year
  Sex: Female

DRUGS (4)
  1. ENOXAPARIN SODIUM [Suspect]
     Indication: VENOUS THROMBOSIS
     Dosage: UNK
  2. LEPIRUDIN [Suspect]
     Indication: VENOUS THROMBOSIS
     Dosage: UNK
  3. HEPARIN SODIUM [Suspect]
     Indication: VENOUS THROMBOSIS
     Dosage: UNK
  4. ALTEPLASE [Suspect]
     Indication: VENOUS THROMBOSIS
     Dosage: UNK
     Route: 042

REACTIONS (4)
  - SPLENIC RUPTURE [None]
  - SPLENIC INFARCTION [None]
  - HAEMOTHORAX [None]
  - EPISTAXIS [None]
